FAERS Safety Report 9045952 (Version 1)
Quarter: 2013Q1

REPORT INFORMATION
  Report Type: Report from Study
  Country: US (occurrence: US)
  Receive Date: 20130201
  Receipt Date: 20130201
  Transmission Date: 20140127
  Serious: No
  Sender: FDA-Public Use
  Company Number: US-ABBOTT-12P-163-1020172-00

PATIENT
  Age: 36 Year
  Sex: Male

DRUGS (12)
  1. HUMIRA [Suspect]
     Indication: PSORIASIS
     Dates: start: 20120927
  2. TOPAMAX [Concomitant]
     Indication: ABNORMAL BEHAVIOUR
  3. FLUVOXAMINE [Concomitant]
     Indication: OBSESSIVE-COMPULSIVE DISORDER
     Dosage: 200 MG IN MORNING, 100 MG IN EVENING
  4. BENZTROPINE [Concomitant]
     Indication: DROOLING
     Dosage: 0.5 MG DAILY
  5. ZYPREXA [Concomitant]
     Indication: ANXIETY
     Dosage: 5 MG IN MIDDLE OF DAY, 2.5 MG AT NIGHT
  6. ABILIFY [Concomitant]
     Indication: PROPHYLAXIS
     Dosage: IN THE EVENING
  7. FISH OIL [Concomitant]
     Indication: PRODUCT USED FOR UNKNOWN INDICATION
  8. ECHINACEA [Concomitant]
     Indication: PRODUCT USED FOR UNKNOWN INDICATION
  9. VITAMIN C [Concomitant]
     Indication: PRODUCT USED FOR UNKNOWN INDICATION
  10. NIACIN [Concomitant]
     Indication: PRODUCT USED FOR UNKNOWN INDICATION
  11. ASTELIN [Concomitant]
     Indication: MULTIPLE ALLERGIES
     Route: 045
  12. VITAMIN D3 [Concomitant]
     Indication: PRODUCT USED FOR UNKNOWN INDICATION
     Dosage: 100 MG DAILY

REACTIONS (4)
  - Fatigue [Recovering/Resolving]
  - Sleep disorder [Recovering/Resolving]
  - Decreased appetite [Recovering/Resolving]
  - Rhinorrhoea [Recovering/Resolving]
